FAERS Safety Report 20138098 (Version 6)
Quarter: 2022Q4

REPORT INFORMATION
  Report Type: Report from Study
  Country: AU (occurrence: AU)
  Receive Date: 20211202
  Receipt Date: 20221227
  Transmission Date: 20230113
  Serious: Yes (Hospitalization, Other)
  Sender: FDA-Public Use
  Company Number: AU-KOREA IPSEN Pharma-2021-29500

PATIENT
  Age: 69 Year
  Sex: Female
  Weight: 56 kg

DRUGS (8)
  1. LANREOTIDE ACETATE [Suspect]
     Active Substance: LANREOTIDE ACETATE
     Indication: Gastroenteropancreatic neuroendocrine tumour disease
     Dosage: 120 MG EVERY 21 DAYS
     Route: 058
     Dates: start: 20181030, end: 20220113
  2. LANREOTIDE ACETATE [Suspect]
     Active Substance: LANREOTIDE ACETATE
     Indication: Neuroendocrine tumour
     Dosage: 120 MG EVERY 14 DAYS
     Route: 058
     Dates: start: 20220113
  3. LANREOTIDE ACETATE [Suspect]
     Active Substance: LANREOTIDE ACETATE
     Dosage: 120 MG EVERY 14 DAYS
     Route: 058
  4. SUNITINIB [Suspect]
     Active Substance: SUNITINIB
     Indication: Gastroenteropancreatic neuroendocrine tumour disease
     Dosage: DAILY DOSE: 37.5MG
     Route: 048
     Dates: start: 20220121, end: 2022
  5. SUNITINIB [Suspect]
     Active Substance: SUNITINIB
     Indication: Disease progression
     Route: 048
     Dates: start: 202202
  6. CREON FORTE [Concomitant]
     Indication: Malabsorption
     Dosage: 2 WITH MEALS
     Route: 048
  7. INSULIN (UNKNOWN TYPE) [Concomitant]
     Indication: Blood glucose increased
     Dosage: 10 UNITS WHEN REQUIRED
     Route: 058
  8. GASTROSTOP [Concomitant]
     Indication: Diarrhoea
     Dosage: WHEN REQUIRED, SINCE SEVERAL YEARS
     Route: 048

REACTIONS (36)
  - Lymphadenopathy [Not Recovered/Not Resolved]
  - Mouth ulceration [Not Recovered/Not Resolved]
  - Lip ulceration [Not Recovered/Not Resolved]
  - Tongue ulceration [Not Recovered/Not Resolved]
  - Pain [Not Recovered/Not Resolved]
  - Ageusia [Not Recovered/Not Resolved]
  - Eye swelling [Not Recovered/Not Resolved]
  - Decreased appetite [Not Recovered/Not Resolved]
  - Fatigue [Not Recovered/Not Resolved]
  - Nausea [Not Recovered/Not Resolved]
  - Oropharyngeal pain [Not Recovered/Not Resolved]
  - Diarrhoea [Recovering/Resolving]
  - Feeling cold [Not Recovered/Not Resolved]
  - Nausea [Not Recovered/Not Resolved]
  - Vomiting [Not Recovered/Not Resolved]
  - Diarrhoea [Not Recovered/Not Resolved]
  - Weight decreased [Recovered/Resolved]
  - Disease progression [Not Recovered/Not Resolved]
  - Blood sodium decreased [Recovered/Resolved with Sequelae]
  - Injection site nodule [Recovered/Resolved with Sequelae]
  - Injection site mass [Not Recovered/Not Resolved]
  - Malaise [Unknown]
  - Vision blurred [Recovered/Resolved]
  - Diarrhoea [Not Recovered/Not Resolved]
  - Anxiety [Unknown]
  - Quality of life decreased [Unknown]
  - Disease progression [Not Recovered/Not Resolved]
  - Hypoglycaemia [Not Recovered/Not Resolved]
  - Gait disturbance [Not Recovered/Not Resolved]
  - Hypophagia [Not Recovered/Not Resolved]
  - Dizziness [Not Recovered/Not Resolved]
  - Flushing [Recovered/Resolved with Sequelae]
  - Flushing [Not Recovered/Not Resolved]
  - Palpitations [Recovered/Resolved]
  - Drug ineffective [Unknown]
  - Off label use [Unknown]

NARRATIVE: CASE EVENT DATE: 20211113
